FAERS Safety Report 7348422-3 (Version None)
Quarter: 2011Q1

REPORT INFORMATION
  Report Type: 
  Country: None (occurrence: None)
  Receive Date: 20110311
  Receipt Date: 20110309
  Transmission Date: 20110831
  Serious: Yes (Death, Other)
  Sender: FDA-Public Use
  Company Number: US-AMGEN-QUU434125

PATIENT
  Age: 82 Year
  Sex: Female

DRUGS (3)
  1. NPLATE [Suspect]
     Indication: IDIOPATHIC THROMBOCYTOPENIC PURPURA
     Dosage: 380 A?G, UNK
     Dates: start: 20100513, end: 20101028
  2. CORTICOSTEROID NOS [Concomitant]
     Indication: IDIOPATHIC THROMBOCYTOPENIC PURPURA
     Dosage: UNK UNK, UNK
     Dates: start: 20091230
  3. NPLATE [Suspect]
     Dates: start: 20100513

REACTIONS (2)
  - GASTROINTESTINAL HAEMORRHAGE [None]
  - CARDIAC ARREST [None]
